FAERS Safety Report 15281213 (Version 1)
Quarter: 2018Q3

REPORT INFORMATION
  Report Type: Spontaneous
  Country: DE (occurrence: DE)
  Receive Date: 20180815
  Receipt Date: 20180815
  Transmission Date: 20181010
  Serious: Yes (Death)
  Sender: FDA-Public Use
  Company Number: DE-B. BRAUN MEDICAL INC.-2053762

PATIENT
  Age: 71 Year
  Sex: Male
  Weight: 83 kg

DRUGS (13)
  1. HEPARIN SODIUM IN DEXTROSE [Suspect]
     Active Substance: HEPARIN SODIUM
     Indication: THROMBOSIS
  2. HCT [Concomitant]
     Active Substance: HYDROCHLOROTHIAZIDE
  3. METFORMIN [Concomitant]
     Active Substance: METFORMIN HYDROCHLORIDE
  4. TOREM [Concomitant]
     Active Substance: TORSEMIDE
  5. ACTILYSE [Suspect]
     Active Substance: ALTEPLASE
  6. SIMVASTATIN. [Concomitant]
     Active Substance: SIMVASTATIN
  7. DOXAZOSIN [Concomitant]
     Active Substance: DOXAZOSIN\DOXAZOSIN MESYLATE
  8. VICTOZA [Concomitant]
     Active Substance: LIRAGLUTIDE
  9. TOUJEO [Concomitant]
     Active Substance: INSULIN GLARGINE
  10. BELOK?ZOK FORTE [Concomitant]
  11. FELODIPINE. [Concomitant]
     Active Substance: FELODIPINE
  12. LISINOPRIL. [Concomitant]
     Active Substance: LISINOPRIL
  13. CLONIDINE. [Concomitant]
     Active Substance: CLONIDINE

REACTIONS (2)
  - Intraventricular haemorrhage [Fatal]
  - Cerebral haemorrhage [Fatal]

NARRATIVE: CASE EVENT DATE: 20170709
